FAERS Safety Report 7019212-6 (Version None)
Quarter: 2010Q3

REPORT INFORMATION
  Report Type: 
  Country: None (occurrence: None)
  Receive Date: 20100928
  Receipt Date: 20100920
  Transmission Date: 20110219
  Serious: Yes (Hospitalization)
  Sender: FDA-Public Use
  Company Number: US-AMGEN-US353283

PATIENT
  Sex: Female
  Weight: 104.4 kg

DRUGS (15)
  1. NPLATE [Suspect]
     Indication: IDIOPATHIC THROMBOCYTOPENIC PURPURA
     Route: 058
     Dates: start: 20090407, end: 20090625
  2. KYTRIL [Concomitant]
     Dates: start: 20090909
  3. UNSPECIFIED MEDICATION [Concomitant]
  4. BETAPACE [Concomitant]
  5. LANOXIN [Concomitant]
  6. PROZAC [Concomitant]
  7. PRILOSEC [Concomitant]
  8. LOTENSIN [Concomitant]
  9. FLEXERIL [Concomitant]
  10. LORCET-HD [Concomitant]
  11. ATIVAN [Concomitant]
  12. REQUIP [Concomitant]
  13. VALIUM [Concomitant]
  14. PHENERGAN [Concomitant]
  15. IRON DEXTRAN [Concomitant]
     Dates: start: 20090506

REACTIONS (6)
  - ABDOMINAL PAIN [None]
  - ABDOMINAL PAIN UPPER [None]
  - DEHYDRATION [None]
  - DIARRHOEA [None]
  - GASTROINTESTINAL DISORDER [None]
  - NAUSEA [None]
